FAERS Safety Report 24752083 (Version 7)
Quarter: 2025Q1

REPORT INFORMATION
  Report Type: Report from Study
  Country: GB (occurrence: GB)
  Receive Date: 20241219
  Receipt Date: 20250325
  Transmission Date: 20250409
  Serious: Yes (Hospitalization, Other)
  Sender: AMGEN
  Company Number: GB-AMGEN-GBRSL2024139108

PATIENT
  Age: 63 Year
  Sex: Male

DRUGS (1)
  1. ECULIZUMAB [Suspect]
     Active Substance: ECULIZUMAB
     Indication: Paroxysmal nocturnal haemoglobinuria
     Dosage: 900 MILLIGRAM, Q2WK
     Route: 065
     Dates: start: 20240531

REACTIONS (9)
  - Chest pain [Recovering/Resolving]
  - Dyspnoea [Unknown]
  - Infection [Recovered/Resolved]
  - Haematochezia [Unknown]
  - Cyanosis [Unknown]
  - Peripheral coldness [Unknown]
  - Dysphagia [Unknown]
  - Fatigue [Recovering/Resolving]
  - Nasopharyngitis [Recovered/Resolved]

NARRATIVE: CASE EVENT DATE: 20240101
